FAERS Safety Report 25091148 (Version 1)
Quarter: 2025Q1

REPORT INFORMATION
  Report Type: Spontaneous
  Country: US (occurrence: US)
  Receive Date: 20250318
  Receipt Date: 20250318
  Transmission Date: 20250409
  Serious: No
  Sender: BAYER HEALTHCARE LLC
  Company Number: US-BAYER-2025A036007

PATIENT
  Age: 78 Year
  Sex: Female

DRUGS (6)
  1. CLARITIN [Suspect]
     Active Substance: LORATADINE
     Indication: Rhinorrhoea
     Dosage: 1 DF, QD
     Route: 048
     Dates: start: 20250314, end: 20250314
  2. CLARITIN [Suspect]
     Active Substance: LORATADINE
     Indication: Hypersensitivity
  3. CLARITIN [Suspect]
     Active Substance: LORATADINE
     Indication: Nasopharyngitis
  4. CLARITIN [Suspect]
     Active Substance: LORATADINE
     Indication: Pruritus
  5. CLARITIN [Suspect]
     Active Substance: LORATADINE
     Indication: Lacrimation increased
  6. HYDROCHLOROTHIAZIDE [Concomitant]
     Active Substance: HYDROCHLOROTHIAZIDE

REACTIONS (1)
  - Drug ineffective [Unknown]
